FAERS Safety Report 4994180-7 (Version None)
Quarter: 2006Q2

REPORT INFORMATION
  Report Type: 
  Country: None (occurrence: None)
  Receive Date: 20060503
  Receipt Date: 20060424
  Transmission Date: 20061013
  Serious: Yes (Death)
  Sender: FDA-Public Use
  Company Number: 2006056215

PATIENT
  Age: 71 Year
  Sex: Female
  Weight: 58 kg

DRUGS (13)
  1. PIROXICAM [Suspect]
     Indication: ILL-DEFINED DISORDER
     Dosage: 40 MG (20 MG, 2 IN 1 D), ORAL
     Route: 048
     Dates: start: 20031222
  2. PREDNISOLONE [Suspect]
     Indication: ILL-DEFINED DISORDER
     Dosage: 10 MG (10 MG, 1 IN 1 D), ORAL
     Route: 048
     Dates: start: 20051031
  3. SULPHINPYRAZONE (SULFINPYRAZONE) [Suspect]
     Indication: ILL-DEFINED DISORDER
     Dosage: 100 MG (100 MG, 1 IN 1 D), ORAL
     Route: 048
     Dates: start: 20031222
  4. THEOPHYLLINE [Suspect]
     Indication: ILL-DEFINED DISORDER
     Dosage: 350 MG (175 MG, 2 IN 1 D), ORAL
     Route: 048
     Dates: start: 20051001
  5. ASPIRIN [Suspect]
     Indication: ILL-DEFINED DISORDER
     Dosage: 150 MG (150 MG, 1 IN 1 D), ORAL
     Route: 048
     Dates: start: 20051001
  6. DIHYDROCODEINE (DIHYDROCODEINE) [Concomitant]
  7. RANITIDINE [Concomitant]
  8. SALBUTAMOL (SALBUTAMOL) [Concomitant]
  9. BECLOMETHASONE (BECLOMETASONE) [Concomitant]
  10. GAVISCON [Concomitant]
  11. DILTIAZEM HCL [Concomitant]
  12. ALL OTHER THERAPEUTIC PRODUCTS (ALL OTHER THERAPEUTIC PRODUCTS) [Concomitant]
  13. DIAZEPAM [Concomitant]

REACTIONS (3)
  - CARDIAC ARREST [None]
  - DUODENAL ULCER PERFORATION [None]
  - MYOCARDIAL ISCHAEMIA [None]
